FAERS Safety Report 9643765 (Version 1)
Quarter: 2013Q4

REPORT INFORMATION
  Report Type: Spontaneous
  Country: US (occurrence: US)
  Receive Date: 20131024
  Receipt Date: 20131024
  Transmission Date: 20140711
  Serious: Yes (Disabling)
  Sender: FDA-Public Use
  Company Number: US-BAYER-2013-128622

PATIENT
  Age: 19 Year
  Sex: Female

DRUGS (1)
  1. MIRENA [Suspect]
     Dosage: 20 MCG/24HR, CONT
     Route: 015
     Dates: start: 20070503, end: 20110701

REACTIONS (9)
  - Menometrorrhagia [None]
  - Abdominal pain [None]
  - Abdominal pain lower [None]
  - Device difficult to use [None]
  - Injury [None]
  - Anxiety [None]
  - Emotional distress [None]
  - Deformity [None]
  - Anhedonia [None]
